FAERS Safety Report 4642830-7 (Version None)
Quarter: 2005Q2

REPORT INFORMATION
  Report Type: 
  Country: None (occurrence: None)
  Receive Date: 20050421
  Receipt Date: 20050409
  Transmission Date: 20051028
  Serious: Yes (Disabling, Other)
  Sender: FDA-Public Use
  Company Number: DE-2005-005580

PATIENT
  Sex: Female
  Weight: 79 kg

DRUGS (1)
  1. SOTALOL HCL [Suspect]
     Dosage: ORAL
     Route: 048
     Dates: start: 19950101

REACTIONS (9)
  - ARTHRALGIA [None]
  - ASTHENIA [None]
  - CONJUNCTIVITIS [None]
  - JOINT SWELLING [None]
  - MOBILITY DECREASED [None]
  - MUCOSAL INFLAMMATION [None]
  - SWELLING FACE [None]
  - THROMBOCYTOPENIA [None]
  - WEIGHT DECREASED [None]
